FAERS Safety Report 4474298-8 (Version None)
Quarter: 2004Q4

REPORT INFORMATION
  Report Type: 
  Country: None (occurrence: None)
  Receive Date: 20041008
  Receipt Date: 20040920
  Transmission Date: 20050328
  Serious: Yes (Hospitalization, Other)
  Sender: FDA-Public Use
  Company Number: USA040978798

PATIENT
  Age: 81 Year
  Sex: Female

DRUGS (12)
  1. FORTEO [Suspect]
     Indication: OSTEOPOROSIS
     Dates: start: 20040401
  2. COUMADIN [Concomitant]
  3. CHILDREN'S ASPIRIN (ACETYLSALICYLIC ACID) [Concomitant]
  4. NORVASC [Concomitant]
  5. AMIODARONE [Concomitant]
  6. SYNTHROID [Concomitant]
  7. PRAVACHOL [Concomitant]
  8. PREVACID [Concomitant]
  9. DIOVAN [Concomitant]
  10. CALCIUM [Concomitant]
  11. MULTIVITAMIN [Concomitant]
  12. TYLENOL [Concomitant]

REACTIONS (1)
  - CARDIAC PACEMAKER INSERTION [None]
